FAERS Safety Report 7954722-6 (Version None)
Quarter: 2011Q4

REPORT INFORMATION
  Report Type: 
  Country: None (occurrence: None)
  Receive Date: 20111202
  Receipt Date: 20111122
  Transmission Date: 20120403
  Serious: Yes (Other)
  Sender: FDA-Public Use
  Company Number: FR-JNJFOC-20101001091

PATIENT
  Sex: Male
  Weight: 43.7 kg

DRUGS (3)
  1. REMICADE [Suspect]
     Route: 042
     Dates: start: 20100621
  2. REMICADE [Suspect]
     Indication: CROHN'S DISEASE
     Route: 042
     Dates: start: 20090403
  3. GROWTH HORMONE [Concomitant]

REACTIONS (1)
  - LYMPHADENOPATHY [None]
